FAERS Safety Report 4725202-6 (Version None)
Quarter: 2005Q3

REPORT INFORMATION
  Report Type: 
  Country: None (occurrence: None)
  Receive Date: 20050725
  Receipt Date: 20050715
  Transmission Date: 20060218
  Serious: Yes (Death)
  Sender: FDA-Public Use
  Company Number: 163-20785-05030128

PATIENT
  Age: 69 Year
  Sex: Male

DRUGS (1)
  1. THALOMID [Suspect]
     Indication: MULTIPLE MYELOMA
     Dosage: 200 MG, DAILY, ORAL
     Route: 048
     Dates: start: 20020830, end: 20040816

REACTIONS (5)
  - ADVERSE EVENT [None]
  - ANAEMIA [None]
  - DISEASE PROGRESSION [None]
  - HAEMOPTYSIS [None]
  - MULTIPLE MYELOMA [None]
